FAERS Safety Report 13965348 (Version 2)
Quarter: 2017Q3

REPORT INFORMATION
  Report Type: Spontaneous
  Country: GB (occurrence: GB)
  Receive Date: 20170913
  Receipt Date: 20170915
  Transmission Date: 20171128
  Serious: Yes (Hospitalization)
  Sender: FDA-Public Use
  Company Number: GB-TEVA-804209ACC

PATIENT
  Age: 66 Year
  Sex: Female
  Weight: 112 kg

DRUGS (7)
  1. DEXAMETHASONE. [Suspect]
     Active Substance: DEXAMETHASONE
     Dosage: 8 MILLIGRAM DAILY;
     Route: 048
     Dates: start: 20170721
  2. OCTENISAN (ALLANTOIN\OCTENIDINE) [Suspect]
     Active Substance: ALLANTOIN\OCTENIDINE
     Route: 061
  3. INDAPAMIDE. [Suspect]
     Active Substance: INDAPAMIDE
     Indication: HYPERTENSION
     Dosage: 1.5 MILLIGRAM DAILY; MORNING
     Route: 048
  4. LEVETIRACETAM. [Suspect]
     Active Substance: LEVETIRACETAM
     Indication: EPILEPSY
     Dosage: 250 GRAM DAILY;
     Route: 048
  5. LEVOTHYROXINE. [Suspect]
     Active Substance: LEVOTHYROXINE
     Indication: HYPOTHYROIDISM
     Route: 048
  6. OMEPRAZOLE. [Suspect]
     Active Substance: OMEPRAZOLE
     Route: 048
  7. PERINDOPRIL [Suspect]
     Active Substance: PERINDOPRIL
     Indication: HYPERTENSION
     Dosage: IN THE MORNING
     Route: 048

REACTIONS (10)
  - Adrenal insufficiency [Unknown]
  - Incorrect dose administered [Unknown]
  - Hypotension [Unknown]
  - Sepsis [Unknown]
  - Acute kidney injury [Unknown]
  - Product packaging confusion [Unknown]
  - Blister [Unknown]
  - Stevens-Johnson syndrome [Not Recovered/Not Resolved]
  - Rash [Unknown]
  - Dizziness [Unknown]

NARRATIVE: CASE EVENT DATE: 20170816
